FAERS Safety Report 4506200-4 (Version None)
Quarter: 2004Q4

REPORT INFORMATION
  Report Type: 
  Country: None (occurrence: None)
  Receive Date: 20041119
  Receipt Date: 20041109
  Transmission Date: 20050328
  Serious: Yes (Life-Threatening, Hospitalization, Disabling)
  Sender: FDA-Public Use
  Company Number: US-MERCK-0411USA01633

PATIENT
  Age: 93 Year
  Sex: Female

DRUGS (3)
  1. ZOCOR [Suspect]
     Indication: DYSLIPIDAEMIA
     Route: 048
     Dates: start: 20040901, end: 20040901
  2. ZOCOR [Suspect]
     Route: 048
     Dates: end: 20040901
  3. [THERAPY UNSPECIFIED] [Concomitant]
     Route: 065

REACTIONS (4)
  - DEMENTIA [None]
  - MUSCULAR WEAKNESS [None]
  - OVERDOSE [None]
  - URINARY TRACT INFECTION [None]
